FAERS Safety Report 6964626-3 (Version None)
Quarter: 2010Q3

REPORT INFORMATION
  Report Type: 
  Country: None (occurrence: None)
  Receive Date: 20100903
  Receipt Date: 20100824
  Transmission Date: 20110219
  Serious: Yes (Other)
  Sender: FDA-Public Use
  Company Number: BR-BAYER-201015692LA

PATIENT
  Age: 37 Year
  Sex: Female

DRUGS (13)
  1. BETAFERON [Suspect]
     Indication: MULTIPLE SCLEROSIS
     Dosage: BETAJECT
     Route: 058
     Dates: start: 20100601
  2. BETAFERON [Suspect]
     Dosage: BETAJECT
     Route: 058
     Dates: start: 20100601
  3. BETAFERON [Suspect]
     Dosage: BETAJECT
     Route: 058
     Dates: start: 20100101
  4. BETAFERON [Suspect]
     Dosage: TOTAL DAILY DOSE: 8 MIU
     Route: 058
     Dates: start: 20100501, end: 20100101
  5. FRONTAL [Concomitant]
     Indication: ANXIETY
     Dosage: 2 TAB A DAY
     Route: 048
     Dates: start: 20100301, end: 20100725
  6. FRONTAL [Concomitant]
     Dosage: 1 OR 2 TAB A DAY
     Route: 048
     Dates: start: 20100701
  7. AMITRIL [Concomitant]
     Indication: INSOMNIA
     Dosage: 3 TABLETS / NIGHT - 2 TABLETS / DAY (FUP 05-JUL-2010)
     Route: 048
     Dates: start: 20100201
  8. CERAZETTE [Concomitant]
     Indication: CONTRACEPTION
     Dosage: 1 TABLET / DAY
     Route: 048
     Dates: start: 20100301
  9. ELIANE 28 [Concomitant]
     Indication: CONTRACEPTION
     Dosage: TOTAL DAILY DOSE: 1 DF
     Route: 048
     Dates: start: 20100601, end: 20100720
  10. AMITRIL [Concomitant]
     Indication: ANXIETY
     Dosage: TOTAL DAILY DOSE: 1 DF
     Route: 048
     Dates: start: 20100301
  11. MERIVA [Concomitant]
     Indication: PRODUCT USED FOR UNKNOWN INDICATION
     Dosage: TOTAL DAILY DOSE: 1 DF
     Route: 048
     Dates: start: 20100721
  12. AMITRIPTYLINE HYDROCHLORIDE [Concomitant]
     Indication: ANXIETY
     Dosage: AS USED: 3 DF
     Route: 048
     Dates: start: 20100201
  13. FLUOXETINA [Concomitant]
     Indication: DEPRESSION
     Route: 048
     Dates: start: 20100801

REACTIONS (33)
  - ABDOMINAL PAIN UPPER [None]
  - ALANINE AMINOTRANSFERASE INCREASED [None]
  - ANXIETY [None]
  - ASPARTATE AMINOTRANSFERASE INCREASED [None]
  - BACK PAIN [None]
  - BRUXISM [None]
  - CHILLS [None]
  - DEPRESSION [None]
  - DYSPNOEA [None]
  - ERYTHEMA [None]
  - FEAR [None]
  - HEADACHE [None]
  - IMPATIENCE [None]
  - INJECTION SITE DISCOLOURATION [None]
  - INJECTION SITE ERYTHEMA [None]
  - INJECTION SITE HAEMORRHAGE [None]
  - INJECTION SITE PAIN [None]
  - INJECTION SITE RASH [None]
  - INSOMNIA [None]
  - IRRITABILITY [None]
  - MENSTRUAL DISORDER [None]
  - MULTIPLE SCLEROSIS RELAPSE [None]
  - NEGATIVE THOUGHTS [None]
  - NERVOUSNESS [None]
  - NIGHTMARE [None]
  - PAIN [None]
  - PANIC REACTION [None]
  - SENSATION OF HEAVINESS [None]
  - SUICIDAL IDEATION [None]
  - TENSION [None]
  - TREMOR [None]
  - VAGINAL DISCHARGE [None]
  - VAGINAL HAEMORRHAGE [None]
